FAERS Safety Report 5645563-3 (Version None)
Quarter: 2008Q1

REPORT INFORMATION
  Report Type: 
  Country: None (occurrence: None)
  Receive Date: 20080229
  Receipt Date: 20080219
  Transmission Date: 20080703
  Serious: Yes (Death, Other)
  Sender: FDA-Public Use
  Company Number: AU-SANOFI-SYNTHELABO-A01200701957

PATIENT
  Age: 36 Year
  Sex: Male
  Weight: 66 kg

DRUGS (3)
  1. STILNOX [Suspect]
     Indication: INSOMNIA
     Dosage: 1 DF
     Route: 048
     Dates: start: 20070101, end: 20070216
  2. ECSTASY [Interacting]
     Indication: DRUG ABUSE
     Dosage: UNK
     Route: 065
  3. ETHANOL [Interacting]
     Indication: ALCOHOL USE
     Dosage: UNK
     Route: 048

REACTIONS (3)
  - FALL [None]
  - SOMNAMBULISM [None]
  - TRANCE [None]
